FAERS Safety Report 6360743-X (Version None)
Quarter: 2009Q3

REPORT INFORMATION
  Report Type: 
  Country: None (occurrence: None)
  Receive Date: 20090918
  Receipt Date: 20090910
  Transmission Date: 20100115
  Serious: Yes (Life-Threatening, Other)
  Sender: FDA-Public Use
  Company Number: GB-JNJFOC-20040600254

PATIENT
  Age: 12 Month
  Sex: Male
  Weight: 8.9 kg

DRUGS (3)
  1. ACETAMINOPHEN [Suspect]
  2. ACETAMINOPHEN [Suspect]
     Indication: PYREXIA
     Dosage: 150 MG (FREQUENCY UNK)
  3. NUROFEN [Suspect]
     Indication: PYREXIA
     Dosage: 75 MG, PO
     Route: 048

REACTIONS (1)
  - HYPOTHERMIA [None]
